FAERS Safety Report 17053934 (Version 1)
Quarter: 2019Q4

REPORT INFORMATION
  Report Type: Spontaneous
  Country: US (occurrence: US)
  Receive Date: 20191120
  Receipt Date: 20191120
  Transmission Date: 20200122
  Serious: No
  Sender: FDA-Public Use
  Company Number: US-VIFOR (INTERNATIONAL) INC.-VIT-2019-11671

PATIENT
  Sex: Male

DRUGS (9)
  1. BUFFERIN [Concomitant]
     Active Substance: ASPIRIN
  2. SIMVASTATIN. [Concomitant]
     Active Substance: SIMVASTATIN
  3. VERAPAMIL [Concomitant]
     Active Substance: VERAPAMIL HYDROCHLORIDE
  4. CALCITRIOL. [Concomitant]
     Active Substance: CALCITRIOL
  5. ALLOPURINOL. [Concomitant]
     Active Substance: ALLOPURINOL
  6. FUROSEMIDE. [Concomitant]
     Active Substance: FUROSEMIDE
  7. INSULIN [Concomitant]
     Active Substance: INSULIN NOS
  8. VELTASSA [Suspect]
     Active Substance: PATIROMER
     Indication: HYPERKALAEMIA
     Route: 065
  9. CARVEDILOL. [Concomitant]
     Active Substance: CARVEDILOL

REACTIONS (1)
  - Constipation [Not Recovered/Not Resolved]
